FAERS Safety Report 13739147 (Version 1)
Quarter: 2017Q3

REPORT INFORMATION
  Report Type: Report from Study
  Country: US (occurrence: US)
  Receive Date: 20170710
  Receipt Date: 20170710
  Transmission Date: 20171127
  Serious: No
  Sender: FDA-Public Use
  Company Number: US-SAOL THERAPEUTICS-2017SAO00637

PATIENT
  Age: 42 Year
  Sex: Female

DRUGS (15)
  1. DILAUDID [Suspect]
     Active Substance: HYDROMORPHONE HYDROCHLORIDE
     Dosage: 3.4754 MG, \DAY
     Route: 037
     Dates: start: 20120117
  2. DILAUDID [Suspect]
     Active Substance: HYDROMORPHONE HYDROCHLORIDE
     Dosage: 1.0990 MG, \DAY
     Dates: start: 20120319
  3. CLONIDINE. [Suspect]
     Active Substance: CLONIDINE
     Dosage: 146.53 MG, \DAY
     Dates: start: 20120319
  4. BUPIVACAINE. [Suspect]
     Active Substance: BUPIVACAINE
     Dosage: 10.990 MG, \DAY
     Dates: start: 20120319
  5. CLONIDINE. [Suspect]
     Active Substance: CLONIDINE
     Dosage: 140.07 MG, \DAY
     Route: 037
     Dates: start: 20120117
  6. COMPOUNDED BACLOFEN [Suspect]
     Active Substance: BACLOFEN
     Dosage: 280.15 ?G, \DAY
     Route: 037
     Dates: start: 20120117
  7. COMPOUNDED BACLOFEN [Suspect]
     Active Substance: BACLOFEN
     Dosage: 293.06 ?G, \DAY
     Dates: start: 20120319
  8. DILAUDID [Suspect]
     Active Substance: HYDROMORPHONE HYDROCHLORIDE
     Dosage: 1.7509 MG, \DAY
     Route: 037
     Dates: start: 20120117
  9. CLONIDINE. [Suspect]
     Active Substance: CLONIDINE
     Dosage: 278.03 MG, \DAY
     Route: 037
     Dates: start: 20120117
  10. DROPERIDOL. [Suspect]
     Active Substance: DROPERIDOL
     Dosage: 45.79 ?G, \DAY
     Route: 037
     Dates: start: 20120319
  11. COMPOUNDED BACLOFEN [Suspect]
     Active Substance: BACLOFEN
     Dosage: 556.06 ?G, \DAY
     Route: 037
     Dates: start: 20120117
  12. BUPIVACAINE. [Suspect]
     Active Substance: BUPIVACAINE
     Dosage: 10.506 MG, \DAY
     Route: 037
     Dates: start: 20120117
  13. BUPIVACAINE. [Suspect]
     Active Substance: BUPIVACAINE
     Dosage: 20.852 MG, \DAY
     Route: 037
     Dates: start: 20120117
  14. DROPERIDOL. [Suspect]
     Active Substance: DROPERIDOL
     Dosage: 43.77 ?G, \DAY
     Route: 037
     Dates: start: 20120117
  15. DROPERIDOL. [Suspect]
     Active Substance: DROPERIDOL
     Dosage: 86.88 ?G, \DAY
     Route: 037
     Dates: start: 20120117

REACTIONS (1)
  - Implant site pain [Recovered/Resolved]

NARRATIVE: CASE EVENT DATE: 20120319
